FAERS Safety Report 9829980 (Version 2)
Quarter: 2014Q1

REPORT INFORMATION
  Report Type: Spontaneous
  Country: IL (occurrence: IL)
  Receive Date: 20140120
  Receipt Date: 20140120
  Transmission Date: 20141002
  Serious: Yes (Other)
  Sender: FDA-Public Use
  Company Number: IL-ELI_LILLY_AND_COMPANY-US_020382315

PATIENT
  Sex: 0

DRUGS (1)
  1. FLUOXETINE [Suspect]
     Indication: DEPRESSION
     Dosage: UNK, UNKNOWN
     Route: 064

REACTIONS (4)
  - Supraventricular extrasystoles [Recovered/Resolved]
  - Ventricular extrasystoles [Recovered/Resolved]
  - Dyskinesia [Unknown]
  - Foetal exposure during pregnancy [Recovered/Resolved]
